FAERS Safety Report 9727156 (Version 2)
Quarter: 2014Q1

REPORT INFORMATION
  Report Type: Spontaneous
  Country: US (occurrence: US)
  Receive Date: 20131203
  Receipt Date: 20140306
  Transmission Date: 20141002
  Serious: Yes (Death)
  Sender: FDA-Public Use
  Company Number: US-UCBSA-104196

PATIENT
  Age: 58 Year
  Sex: Male
  Weight: 85.7 kg

DRUGS (2)
  1. KEPPRA XR [Suspect]
     Indication: CONVULSION
     Dosage: STRENGTH 750 MG
     Dates: start: 2011, end: 20131118
  2. ZOLOFT [Concomitant]
     Indication: DEPRESSION
     Dosage: 1 TABLET DAILY FOR ONE YEAR

REACTIONS (2)
  - Completed suicide [Fatal]
  - Gun shot wound [Fatal]
